FAERS Safety Report 18212564 (Version 1)
Quarter: 2020Q3

REPORT INFORMATION
  Report Type: Spontaneous
  Country: US (occurrence: US)
  Receive Date: 20200828
  Receipt Date: 20200828
  Transmission Date: 20201103
  Serious: No
  Sender: FDA-Public Use
  Company Number: None

PATIENT
  Age: 81 Year
  Sex: Female
  Weight: 105 kg

DRUGS (13)
  1. CLONAZEPAM 0.5MG [Concomitant]
     Active Substance: CLONAZEPAM
  2. CAPECITABINE. [Suspect]
     Active Substance: CAPECITABINE
     Indication: COLON CANCER
     Route: 048
     Dates: start: 20200813
  3. ACETAMINOPHEN 500MG [Concomitant]
     Active Substance: ACETAMINOPHEN
  4. CAPECITABINE. [Suspect]
     Active Substance: CAPECITABINE
     Indication: COLON CANCER
     Route: 048
     Dates: start: 20200813
  5. TUMS 500MG [Concomitant]
  6. CELEBREX [Concomitant]
     Active Substance: CELECOXIB
  7. WELLBUREIN XL 150MG [Concomitant]
  8. ATORAVASTATIN 40MG [Concomitant]
  9. SENOKOT 8.6MG [Concomitant]
  10. ASPIRIN 81 MG [Concomitant]
     Active Substance: ASPIRIN
  11. LIDODERM [Concomitant]
     Active Substance: LIDOCAINE
  12. DOCUSATE 100MG [Concomitant]
     Active Substance: DOCUSATE
  13. PROCHLORPERAZINE 10MG [Concomitant]

REACTIONS (3)
  - Eye irritation [None]
  - Lacrimation increased [None]
  - Ocular hyperaemia [None]

NARRATIVE: CASE EVENT DATE: 20200821
